FAERS Safety Report 9056143 (Version 6)
Quarter: 2014Q1

REPORT INFORMATION
  Report Type: Report from Study
  Country: CA (occurrence: CA)
  Receive Date: 20130205
  Receipt Date: 20140123
  Transmission Date: 20141002
  Serious: Yes (Other)
  Sender: FDA-Public Use
  Company Number: PHHY2013CA010360

PATIENT
  Age: 63 Year
  Sex: Male

DRUGS (6)
  1. GLEEVEC [Suspect]
     Indication: GASTROINTESTINAL STROMAL TUMOUR
     Dosage: 400 MG, QD
     Route: 048
     Dates: start: 201112
  2. FLOMAX//TAMSULOSIN HYDROCHLORIDE [Concomitant]
     Indication: BENIGN PROSTATIC HYPERPLASIA
     Dosage: UNK UKN, UNK
  3. PROSCAR [Concomitant]
     Dosage: UNK UKN, UNK
  4. CALCIUM [Concomitant]
     Dosage: UNK UKN, UNK
  5. VITAMIN D [Concomitant]
  6. VITAMIN B12 [Concomitant]

REACTIONS (13)
  - Hyperaesthesia [Unknown]
  - Skin irritation [Unknown]
  - Skin lesion [Unknown]
  - Scab [Unknown]
  - Skin burning sensation [Unknown]
  - Secretion discharge [Unknown]
  - Wound secretion [Unknown]
  - Skin disorder [Unknown]
  - Increased tendency to bruise [Unknown]
  - Blood pressure decreased [Recovering/Resolving]
  - Nasal congestion [Unknown]
  - Nasopharyngitis [Unknown]
  - Dizziness [Unknown]
